FAERS Safety Report 6898658-0 (Version None)
Quarter: 2010Q3

REPORT INFORMATION
  Report Type: 
  Country: None (occurrence: None)
  Receive Date: 20100802
  Receipt Date: 20071117
  Transmission Date: 20110219
  Serious: No
  Sender: FDA-Public Use
  Company Number: US-PFIZER INC-2007082158

PATIENT
  Sex: Female

DRUGS (4)
  1. LYRICA [Suspect]
     Indication: NEUROPATHY PERIPHERAL
     Dates: start: 20060101
  2. CYMBALTA [Concomitant]
  3. AMBIEN [Concomitant]
  4. HYDROCODONE BITARTRATE [Concomitant]

REACTIONS (1)
  - OEDEMA PERIPHERAL [None]
